FAERS Safety Report 6111760-6 (Version None)
Quarter: 2009Q1

REPORT INFORMATION
  Report Type: 
  Country: None (occurrence: None)
  Receive Date: 20090311
  Receipt Date: 20080714
  Transmission Date: 20090719
  Serious: No
  Sender: FDA-Public Use
  Company Number: US-TYCO HEALTHCARE/MALLINCKRODT-T200801168

PATIENT

DRUGS (6)
  1. RESTORIL [Suspect]
     Indication: SLEEP DISORDER
     Dosage: 15 MG, QD
     Route: 048
     Dates: start: 19980101, end: 20080701
  2. RESTORIL [Suspect]
     Dosage: 2 TAB, QD
     Route: 048
     Dates: start: 20080701, end: 20080701
  3. RESTORIL [Suspect]
     Dosage: 15 MG, QD
     Route: 048
     Dates: start: 20080701
  4. FAMVIR                             /01226201/ [Concomitant]
     Dosage: UNK, QD
     Route: 048
  5. SYNTHROID [Concomitant]
     Indication: HYPOTHYROIDISM
     Dosage: UNK, QD
     Route: 048
  6. UNSPECIFIED VITAMIN [Concomitant]
     Dosage: UNK, QD
     Route: 048

REACTIONS (2)
  - DRUG DIVERSION [None]
  - DRUG INEFFECTIVE [None]
